FAERS Safety Report 18557880 (Version 1)
Quarter: 2020Q4

REPORT INFORMATION
  Report Type: Spontaneous
  Country: GB (occurrence: GB)
  Receive Date: 20201130
  Receipt Date: 20201130
  Transmission Date: 20210114
  Serious: Yes (Disabling, Other)
  Sender: FDA-Public Use
  Company Number: GB-TEVA-2020-GB-1853138

PATIENT
  Age: 49 Year
  Sex: Male
  Weight: 110 kg

DRUGS (21)
  1. MONTELUKAST [Suspect]
     Active Substance: MONTELUKAST SODIUM
     Indication: ASTHMA
     Dosage: 10 MG
     Route: 048
     Dates: start: 20080501, end: 20201024
  2. OCTASA [Concomitant]
     Active Substance: MESALAMINE
  3. SALBUTAMOL [Concomitant]
     Active Substance: ALBUTEROL
  4. CODEINE [Concomitant]
     Active Substance: CODEINE
  5. MEBEVERINE [Concomitant]
     Active Substance: MEBEVERINE
  6. FEXOFENADINE [Concomitant]
     Active Substance: FEXOFENADINE HYDROCHLORIDE
  7. BACLOFEN. [Concomitant]
     Active Substance: BACLOFEN
  8. MATRIFEN [Concomitant]
     Active Substance: FENTANYL
  9. FOLIC ACID. [Concomitant]
     Active Substance: FOLIC ACID
  10. IMRALDI [Concomitant]
     Active Substance: ADALIMUMAB
  11. ADCAL-D3 [Concomitant]
     Active Substance: CALCIUM CARBONATE\CHOLECALCIFEROL
  12. TOLTERODINE [Concomitant]
     Active Substance: TOLTERODINE
  13. SPIRIVA [Concomitant]
     Active Substance: TIOTROPIUM BROMIDE MONOHYDRATE
  14. EPILIM [Concomitant]
     Active Substance: VALPROATE SODIUM
  15. ALENDRONIC ACID [Concomitant]
     Active Substance: ALENDRONIC ACID
  16. MOMETASONE [Concomitant]
     Active Substance: MOMETASONE
  17. PANTOPRAZOLE [Concomitant]
     Active Substance: PANTOPRAZOLE
  18. CARBOCISTEINE [Concomitant]
     Active Substance: CARBOCYSTEINE
  19. FLUTIFORM [Concomitant]
     Active Substance: FLUTICASONE PROPIONATE\FORMOTEROL FUMARATE
  20. METOCLOPRAMIDE. [Concomitant]
     Active Substance: METOCLOPRAMIDE
  21. VITAMIN B12 [Concomitant]
     Active Substance: CYANOCOBALAMIN

REACTIONS (13)
  - Cough [Recovered/Resolved with Sequelae]
  - Fungal skin infection [Not Recovered/Not Resolved]
  - Oral fungal infection [Not Recovered/Not Resolved]
  - Ear infection fungal [Unknown]
  - Dysphonia [Recovering/Resolving]
  - Dysphagia [Recovering/Resolving]
  - Dry throat [Recovered/Resolved with Sequelae]
  - Oropharyngeal pain [Recovering/Resolving]
  - Pharyngeal swelling [Unknown]
  - Claustrophobia [Recovered/Resolved]
  - Contusion [Recovering/Resolving]
  - Fatigue [Recovering/Resolving]
  - Anxiety [Recovering/Resolving]

NARRATIVE: CASE EVENT DATE: 20200301
